FAERS Safety Report 4663444-9 (Version None)
Quarter: 2005Q2

REPORT INFORMATION
  Report Type: 
  Country: None (occurrence: None)
  Receive Date: 20050513
  Receipt Date: 20050428
  Transmission Date: 20051028
  Serious: Yes (Life-Threatening, Hospitalization)
  Sender: FDA-Public Use
  Company Number: 2004-0007467

PATIENT
  Age: 61 Year
  Sex: Female
  Weight: 59 kg

DRUGS (14)
  1. HEPSERA [Suspect]
     Indication: HEPATITIS B
     Dosage: 10 MG, 1 IN 1  D, ORAL
     Route: 048
     Dates: start: 20040312
  2. ZEFFIX (LAMIVUDINE) [Suspect]
     Indication: HEPATITIS B
     Dosage: 100 MG, 1 IN 1 D, ORAL
     Route: 048
     Dates: start: 20000816
  3. SOPROL (BISOPROLOL FUMARATE) (10 MG) [Suspect]
     Indication: HYPERTENSION
     Dosage: 10 MG, 1 IN 1 D, ORAL
     Route: 048
     Dates: end: 20040905
  4. LASILIX (FUROSEMIDE) (20 MG) [Suspect]
     Indication: HYPERTENSION
     Dosage: 20 MG, 1 IN 1 D, ORAL
     Route: 048
  5. TOCO 500 (TOCOPHERYL ACETATE) [Suspect]
     Dosage: 500 MG, 2 IN 1 D, ORAL
     Route: 048
     Dates: end: 20040905
  6. PRAVASTATIN [Concomitant]
  7. VASTAREL (TRIMEZATIDINE) [Concomitant]
  8. GAVISCON [Concomitant]
  9. ZOVIRAX (ACICLOVIR SODIUM) [Concomitant]
  10. ADVIL [Concomitant]
  11. PREVISCAN (FLUINDIONE) [Concomitant]
  12. INDAPAMIDE [Concomitant]
  13. POTASSIUM CHLORIDE [Concomitant]
  14. ASPEGIC 1000 [Concomitant]

REACTIONS (12)
  - ANGINA PECTORIS [None]
  - APHASIA [None]
  - ARRHYTHMIA [None]
  - ATRIAL FIBRILLATION [None]
  - BRADYCARDIA [None]
  - CARDIOMYOPATHY [None]
  - CEREBRAL ISCHAEMIA [None]
  - CEREBROVASCULAR ACCIDENT [None]
  - HEART RATE INCREASED [None]
  - MYOCARDIAL ISCHAEMIA [None]
  - PULMONARY EMBOLISM [None]
  - TROPONIN INCREASED [None]
